FAERS Safety Report 12944180 (Version 1)
Quarter: 2016Q4

REPORT INFORMATION
  Report Type: Spontaneous
  Country: US (occurrence: US)
  Receive Date: 20161115
  Receipt Date: 20161115
  Transmission Date: 20170207
  Serious: Yes (Other)
  Sender: FDA-Public Use
  Company Number: US-ROCHE-1714270

PATIENT
  Sex: Female

DRUGS (5)
  1. HERCEPTIN [Suspect]
     Active Substance: TRASTUZUMAB
     Indication: HER-2 POSITIVE BREAST CANCER
     Route: 065
  2. HERCEPTIN [Suspect]
     Active Substance: TRASTUZUMAB
     Indication: INVASIVE DUCTAL BREAST CARCINOMA
  3. HERCEPTIN [Suspect]
     Active Substance: TRASTUZUMAB
     Indication: BREAST CANCER
  4. CARBOPLATIN. [Concomitant]
     Active Substance: CARBOPLATIN
     Indication: BREAST CANCER
  5. TAXOTERE [Concomitant]
     Active Substance: DOCETAXEL
     Indication: BREAST CANCER

REACTIONS (3)
  - Palpitations [Unknown]
  - Mitral valve incompetence [Unknown]
  - Dizziness [Unknown]
